FAERS Safety Report 7961035-5 (Version None)
Quarter: 2011Q4

REPORT INFORMATION
  Report Type: 
  Country: None (occurrence: None)
  Receive Date: 20111207
  Receipt Date: 20111128
  Transmission Date: 20120403
  Serious: Yes (Other)
  Sender: FDA-Public Use
  Company Number: US-ELI_LILLY_AND_COMPANY-US201112000512

PATIENT
  Sex: Female

DRUGS (1)
  1. FORTEO [Suspect]
     Indication: OSTEOPOROSIS
     Dosage: 20 UG, QD
     Dates: start: 20110126

REACTIONS (7)
  - GASTROINTESTINAL DISORDER [None]
  - DIVERTICULUM [None]
  - NAUSEA [None]
  - DYSPHAGIA [None]
  - MALAISE [None]
  - WEIGHT DECREASED [None]
  - PAIN [None]
